FAERS Safety Report 17184513 (Version 3)
Quarter: 2020Q1

REPORT INFORMATION
  Report Type: Spontaneous
  Country: US (occurrence: US)
  Receive Date: 20191220
  Receipt Date: 20200114
  Transmission Date: 20200409
  Serious: Yes (Other)
  Sender: FDA-Public Use
  Company Number: US-PFIZER INC-2019543742

PATIENT
  Age: 60 Year
  Sex: Female
  Weight: 78.2 kg

DRUGS (2)
  1. PRISTIQ EXTENDED-RELEASE [Suspect]
     Active Substance: DESVENLAFAXINE SUCCINATE
     Indication: BIPOLAR DISORDER
     Dosage: 50 MG, 1X/DAY
     Route: 048
     Dates: start: 2009
  2. PRISTIQ EXTENDED-RELEASE [Suspect]
     Active Substance: DESVENLAFAXINE SUCCINATE
     Indication: DEPRESSION

REACTIONS (6)
  - Intervertebral disc degeneration [Unknown]
  - Pain [Unknown]
  - Finger deformity [Unknown]
  - Osteoarthritis [Not Recovered/Not Resolved]
  - Renal neoplasm [Unknown]
  - Hypertension [Unknown]

NARRATIVE: CASE EVENT DATE: 2011
